FAERS Safety Report 5329470-1 (Version None)
Quarter: 2007Q2

REPORT INFORMATION
  Report Type: 
  Country: None (occurrence: None)
  Receive Date: 20070221
  Receipt Date: 20060728
  Transmission Date: 20071010
  Serious: Yes (Hospitalization)
  Sender: FDA-Public Use
  Company Number: BDI-008469

PATIENT
  Age: 38 Year
  Sex: Female

DRUGS (6)
  1. ISOVUE-300 [Suspect]
     Indication: ABDOMINAL ABSCESS
     Dosage: 150 ML ONCE IV
     Route: 042
     Dates: start: 20060713, end: 20060713
  2. ISOVUE-300 [Suspect]
     Indication: COMPUTERISED TOMOGRAM
     Dosage: 150 ML ONCE IV
     Route: 042
     Dates: start: 20060713, end: 20060713
  3. BARIUM SUSPENSION [Concomitant]
  4. PENTASA [Concomitant]
  5. ERTAPENEM [Concomitant]
  6. ORAL CONTRACEPTIVE [Concomitant]

REACTIONS (1)
  - ANAPHYLACTIC SHOCK [None]
